FAERS Safety Report 5631656-3 (Version None)
Quarter: 2008Q1

REPORT INFORMATION
  Report Type: 
  Country: None (occurrence: None)
  Receive Date: 20080220
  Receipt Date: 20080208
  Transmission Date: 20080703
  Serious: Yes (Disabling)
  Sender: FDA-Public Use
  Company Number: DE-WYE-G01025708

PATIENT
  Age: 49 Year
  Sex: Male

DRUGS (3)
  1. TREVILOR [Suspect]
     Route: 048
     Dates: start: 20060701
  2. ZYPREXA [Suspect]
     Route: 048
     Dates: start: 20060701, end: 20071120
  3. QUILONIUM-R [Suspect]
     Route: 048
     Dates: start: 20060701

REACTIONS (3)
  - ALCOHOL ABUSE [None]
  - DIABETES MELLITUS [None]
  - WEIGHT INCREASED [None]
